FAERS Safety Report 21417974 (Version 4)
Quarter: 2022Q4

REPORT INFORMATION
  Report Type: Other
  Country: US (occurrence: None)
  Receive Date: 20221006
  Receipt Date: 20221128
  Transmission Date: 20230113
  Serious: Yes (Hospitalization, Other)
  Sender: FDA-Public Use
  Company Number: US-ROCHE-2408881

PATIENT
  Age: 72 Year
  Sex: Male
  Weight: 74.002 kg

DRUGS (17)
  1. OCREVUS [Suspect]
     Active Substance: OCRELIZUMAB
     Indication: Relapsing multiple sclerosis
     Dosage: NO; DOT: 09/MAY/2022, 08/NOV/2021, (STRENGTH: 30 MG/ML), LAST INFUSION ON 17/MAY/2022
     Route: 042
     Dates: start: 20190321
  2. TAMSULOSIN [Concomitant]
     Active Substance: TAMSULOSIN
  3. VITAMIN C [Concomitant]
     Active Substance: ASCORBIC ACID
  4. VITAMIN D3 [Concomitant]
     Active Substance: CHOLECALCIFEROL
  5. ASPIRIN [Concomitant]
     Active Substance: ASPIRIN
  6. LIPITOR [Concomitant]
     Active Substance: ATORVASTATIN CALCIUM
  7. LIORESAL [Concomitant]
     Active Substance: BACLOFEN
  8. CRANBERRY [Concomitant]
     Active Substance: CRANBERRY
  9. VOLTAREN [Concomitant]
     Active Substance: DICLOFENAC SODIUM
  10. PROSCAR [Concomitant]
     Active Substance: FINASTERIDE
  11. LEVOTHYROXINE [Concomitant]
     Active Substance: LEVOTHYROXINE
  12. COZAAR [Concomitant]
     Active Substance: LOSARTAN POTASSIUM
  13. HIPREX (UNITED STATES) [Concomitant]
  14. NITROSTAT [Concomitant]
     Active Substance: NITROGLYCERIN
  15. DITROPAN XL [Concomitant]
     Active Substance: OXYBUTYNIN CHLORIDE
  16. OXYGEN [Concomitant]
     Active Substance: OXYGEN
  17. REQUIP [Concomitant]
     Active Substance: ROPINIROLE HYDROCHLORIDE

REACTIONS (9)
  - Herpes zoster [Unknown]
  - Urinary tract infection [Not Recovered/Not Resolved]
  - Fall [Unknown]
  - Decubitus ulcer [Not Recovered/Not Resolved]
  - COVID-19 [Unknown]
  - Cellulitis [Unknown]
  - Blood immunoglobulin G decreased [Unknown]
  - Blood immunoglobulin M decreased [Unknown]
  - Clonus [Unknown]

NARRATIVE: CASE EVENT DATE: 20220101
